FAERS Safety Report 5747725-3 (Version None)
Quarter: 2008Q2

REPORT INFORMATION
  Report Type: 
  Country: None (occurrence: None)
  Receive Date: 20080523
  Receipt Date: 20080521
  Transmission Date: 20081010
  Serious: Yes (Other)
  Sender: FDA-Public Use
  Company Number: CA-ASTRAZENECA-2008UW08504

PATIENT
  Sex: Male
  Weight: 70.5 kg

DRUGS (9)
  1. CRESTOR [Suspect]
     Indication: BLOOD CHOLESTEROL
     Route: 048
     Dates: start: 20080204, end: 20080401
  2. VENTOLIN [Concomitant]
     Indication: ASTHMA
     Route: 055
     Dates: start: 19870101
  3. ADVAIR DISKUS 100/50 [Concomitant]
     Indication: ILL-DEFINED DISORDER
     Route: 055
     Dates: start: 19980101
  4. NITROGLYCERIN [Concomitant]
     Indication: CARDIAC DISORDER
     Dates: start: 20010201
  5. APOTHEODUR [Concomitant]
     Indication: ILL-DEFINED DISORDER
     Route: 048
     Dates: start: 19900601
  6. METFORMIN HCL [Concomitant]
     Indication: DIABETES MELLITUS
     Route: 048
     Dates: start: 19950601
  7. ALTACE [Concomitant]
     Indication: CARDIAC DISORDER
     Route: 048
     Dates: start: 20010211
  8. NORVASC [Concomitant]
     Indication: CARDIAC DISORDER
     Route: 048
     Dates: start: 20010211
  9. PLAVIX [Concomitant]
     Indication: CARDIAC DISORDER
     Route: 048
     Dates: start: 20010211

REACTIONS (2)
  - BACTERIAL INFECTION [None]
  - NAUSEA [None]
